FAERS Safety Report 20212702 (Version 1)
Quarter: 2021Q4

REPORT INFORMATION
  Report Type: Spontaneous
  Country: ES (occurrence: ES)
  Receive Date: 20211221
  Receipt Date: 20211221
  Transmission Date: 20220303
  Serious: Yes (Death)
  Sender: FDA-Public Use
  Company Number: None

PATIENT
  Age: 77 Year
  Sex: Male

DRUGS (12)
  1. RISPERIDONE [Suspect]
     Active Substance: RISPERIDONE
     Indication: Delirium
     Dosage: UNK, 1.5 MG C/24 H
     Route: 048
     Dates: start: 20200227, end: 20200730
  2. SERTRALINE HYDROCHLORIDE [Suspect]
     Active Substance: SERTRALINE HYDROCHLORIDE
     Indication: Product used for unknown indication
     Dosage: 100 MILLIGRAM
     Route: 048
     Dates: start: 20200420, end: 20200730
  3. CALCIFEDIOL [Concomitant]
     Active Substance: CALCIFEDIOL
     Indication: Nephropathy
     Dosage: UNK, 16000.0 UI C/30 DIAS
     Route: 048
     Dates: start: 20180425
  4. REPAGLINIDE [Concomitant]
     Active Substance: REPAGLINIDE
     Indication: Diabetes mellitus
     Dosage: 0.5 MILLIGRAM
     Route: 048
     Dates: start: 20200605
  5. FOLIC ACID [Concomitant]
     Active Substance: FOLIC ACID
     Indication: Folate deficiency
     Dosage: 5.0 MG C/48 HORAS
     Route: 048
     Dates: start: 20190130
  6. MANIDIPINE HYDROCHLORIDE [Concomitant]
     Active Substance: MANIDIPINE HYDROCHLORIDE
     Indication: Hypertension
     Dosage: 5 MILLIGRAM
     Route: 048
     Dates: start: 20190108
  7. OMEPRAZOL CINFA [Concomitant]
     Indication: Back pain
     Dosage: 20 MILLIGRAM
     Route: 048
     Dates: start: 20100717
  8. LINAGLIPTIN [Concomitant]
     Active Substance: LINAGLIPTIN
     Indication: Diabetes mellitus
     Dosage: 5 MILLIGRAM
     Route: 048
     Dates: start: 20200521
  9. ZALDIAR [Concomitant]
     Active Substance: ACETAMINOPHEN\TRAMADOL HYDROCHLORIDE
     Indication: Product used for unknown indication
     Dosage: 1.0 COMP C/12 H
     Route: 048
     Dates: start: 20190408
  10. CARVEDILOL CINFA [Concomitant]
     Indication: Essential hypertension
     Dosage: 6.25 MILLIGRAM
     Route: 048
     Dates: start: 20200707
  11. MYCOSTATIN [Concomitant]
     Active Substance: NYSTATIN
     Indication: Neoplasm malignant
     Dosage: UNK, 500000.0 UI C/6 HORAS
     Route: 048
     Dates: start: 20200116
  12. Nolotil [Concomitant]
     Indication: Product used for unknown indication
     Dosage: 575 MILLIGRAM
     Route: 048
     Dates: start: 20181009

REACTIONS (1)
  - Neurological decompensation [Fatal]

NARRATIVE: CASE EVENT DATE: 20200728
